FAERS Safety Report 15622725 (Version 2)
Quarter: 2018Q4

REPORT INFORMATION
  Report Type: Spontaneous
  Country: JP (occurrence: JP)
  Receive Date: 20181115
  Receipt Date: 20181228
  Transmission Date: 20190205
  Serious: Yes (Other)
  Sender: FDA-Public Use
  Company Number: JP-PFIZER INC-2016078589

PATIENT
  Age: 66 Year
  Sex: Male

DRUGS (4)
  1. XALATAN [Concomitant]
     Active Substance: LATANOPROST
     Route: 061
  2. PACLITAXEL. [Suspect]
     Active Substance: PACLITAXEL
     Indication: GASTRIC CANCER
     Dosage: 80 MG/M2, THREE TIMES A MONTH
     Route: 041
  3. CARTEOLOL [Concomitant]
     Active Substance: CARTEOLOL
     Route: 061
  4. BRIMONIDINE [Concomitant]
     Active Substance: BRIMONIDINE TARTRATE
     Route: 061

REACTIONS (2)
  - Cystoid macular oedema [Recovering/Resolving]
  - Maculopathy [Recovering/Resolving]
